FAERS Safety Report 17405970 (Version 1)
Quarter: 2020Q1

REPORT INFORMATION
  Report Type: Spontaneous
  Country: US (occurrence: US)
  Receive Date: 20200212
  Receipt Date: 20200212
  Transmission Date: 20200409
  Serious: Yes (Other)
  Sender: FDA-Public Use
  Company Number: US-ROCHE-2541729

PATIENT
  Age: 58 Year
  Sex: Female
  Weight: 83.99 kg

DRUGS (1)
  1. OCREVUS [Suspect]
     Active Substance: OCRELIZUMAB
     Indication: RELAPSING MULTIPLE SCLEROSIS
     Dosage: ONGOING: YES
     Route: 042

REACTIONS (6)
  - Fall [Unknown]
  - Rhinorrhoea [Not Recovered/Not Resolved]
  - Ear pruritus [Recovered/Resolved]
  - Cough [Not Recovered/Not Resolved]
  - Nasal congestion [Unknown]
  - Throat irritation [Recovered/Resolved]

NARRATIVE: CASE EVENT DATE: 201907
